FAERS Safety Report 23874764 (Version 1)
Quarter: 2024Q2

REPORT INFORMATION
  Report Type: Spontaneous
  Country: US (occurrence: US)
  Receive Date: 20240520
  Receipt Date: 20240520
  Transmission Date: 20240716
  Serious: No
  Sender: FDA-Public Use
  Company Number: US-TORRENT-00013568

PATIENT
  Sex: Female

DRUGS (1)
  1. ESCITALOPRAM OXALATE [Suspect]
     Active Substance: ESCITALOPRAM OXALATE
     Indication: Product used for unknown indication
     Dosage: 10 MG HALF A TABLET?FOR 7 DAYS FULL TABLET FOR THE LAST 4 DAYS
     Route: 048

REACTIONS (2)
  - Wrong technique in product usage process [Unknown]
  - Tremor [Unknown]
